FAERS Safety Report 14610731 (Version 2)
Quarter: 2018Q4

REPORT INFORMATION
  Report Type: Report from Study
  Country: US (occurrence: US)
  Receive Date: 20180308
  Receipt Date: 20181114
  Transmission Date: 20190204
  Serious: Yes (Hospitalization, Other)
  Sender: FDA-Public Use
  Company Number: US-UCBSA-2017043704

PATIENT
  Age: 67 Year
  Sex: Female

DRUGS (10)
  1. LACOSAMIDE. [Suspect]
     Active Substance: LACOSAMIDE
     Indication: SEIZURE
     Dosage: 150 MG, TWICE A DAY
     Route: 048
     Dates: start: 20130618, end: 201507
  2. KEPPRA [Suspect]
     Active Substance: LEVETIRACETAM
     Dosage: 1000 MG, 3X/DAY (TID)
     Route: 048
  3. CALCIUM [Concomitant]
     Active Substance: CALCIUM
     Indication: PRODUCT USED FOR UNKNOWN INDICATION
  4. CLONAZEPAM. [Concomitant]
     Active Substance: CLONAZEPAM
     Indication: PRODUCT USED FOR UNKNOWN INDICATION
     Dosage: 0.5 MG, ONCE DAILY (QD)
  5. FENTANYL. [Concomitant]
     Active Substance: FENTANYL
     Indication: PRODUCT USED FOR UNKNOWN INDICATION
  6. LACOSAMIDE. [Suspect]
     Active Substance: LACOSAMIDE
     Dosage: 150 MG, TWICE A DAY
     Route: 048
  7. HYDROCODONE/IBUPROFEN [Concomitant]
     Active Substance: HYDROCODONE\IBUPROFEN
     Indication: PRODUCT USED FOR UNKNOWN INDICATION
     Dosage: UNK
  8. VITAMIN D3 [Concomitant]
     Active Substance: CHOLECALCIFEROL
     Indication: PRODUCT USED FOR UNKNOWN INDICATION
  9. KEPPRA [Suspect]
     Active Substance: LEVETIRACETAM
     Indication: SEIZURE
     Dosage: UNK
     Route: 048
  10. MULTIVITAMIN [Concomitant]
     Active Substance: VITAMINS
     Indication: PRODUCT USED FOR UNKNOWN INDICATION

REACTIONS (7)
  - Pelvic fracture [Recovered/Resolved]
  - Back disorder [Unknown]
  - Fall [Recovered/Resolved]
  - Off label use [Unknown]
  - Product dose omission [Unknown]
  - Generalised tonic-clonic seizure [Unknown]
  - Seizure [Recovered/Resolved]

NARRATIVE: CASE EVENT DATE: 201507
